FAERS Safety Report 16275636 (Version 1)
Quarter: 2019Q2

REPORT INFORMATION
  Report Type: Spontaneous
  Country: US (occurrence: US)
  Receive Date: 20190401
  Receipt Date: 20190401
  Transmission Date: 20190711
  Serious: No
  Sender: FDA-Public Use
  Company Number: None

PATIENT
  Age: 42 Year
  Sex: Female
  Weight: 68.95 kg

DRUGS (1)
  1. DROSPIRENONE 3 MG AND ETHINYL ESTRADIOL [Suspect]
     Active Substance: DROSPIRENONE\ETHINYL ESTRADIOL
     Indication: PREMENSTRUAL DYSPHORIC DISORDER
     Dosage: 3-0.02 MG, 1 TABLET DAILY, PO
     Route: 048
     Dates: start: 20190125

REACTIONS (6)
  - Nausea [None]
  - Product substitution issue [None]
  - Anxiety [None]
  - Headache [None]
  - Irritability [None]
  - Appetite disorder [None]

NARRATIVE: CASE EVENT DATE: 20190125
